FAERS Safety Report 9819069 (Version 1)
Quarter: 2013Q4

REPORT INFORMATION
  Report Type: Spontaneous
  Country: US (occurrence: None)
  Receive Date: 20131223
  Receipt Date: 20131223
  Transmission Date: 20140711
  Serious: Yes (Other)
  Sender: FDA-Public Use
  Company Number: 222014

PATIENT
  Age: 77 Year
  Sex: Male

DRUGS (7)
  1. PICATO [Suspect]
     Indication: ACTINIC KERATOSIS
     Dosage: 1  IN 1 DAY TOPICAL
     Route: 061
     Dates: start: 20130517, end: 20130519
  2. LOPRESSOR (METOPROLOL TARTRATE) [Concomitant]
  3. OMEPRAZOLE (OMEPRAZOLE) [Concomitant]
  4. HCTZ (HYDROCHLOROTHIAZIDE) [Concomitant]
  5. ASA (ACETYLSALICYLIC ACID) [Concomitant]
  6. LIPITOR (ATORVASTATIN CALCIUM) [Concomitant]
  7. RAMIPRIL (RAMIPRIL) [Concomitant]

REACTIONS (2)
  - Application site erythema [None]
  - Application site pain [None]
